FAERS Safety Report 4323516-5 (Version None)
Quarter: 2004Q1

REPORT INFORMATION
  Report Type: 
  Country: None (occurrence: None)
  Receive Date: 20040324
  Receipt Date: 20040308
  Transmission Date: 20041129
  Serious: Yes (Hospitalization)
  Sender: FDA-Public Use
  Company Number: 04P-062-0246582-01

PATIENT
  Age: 57 Year
  Sex: Female
  Weight: 86 kg

DRUGS (10)
  1. HUMIRA [Suspect]
     Indication: RHEUMATOID ARTHRITIS
     Dosage: 40 MG, 1 IN 2 WK, SUBCUTANEOUS
     Route: 058
     Dates: start: 20030925, end: 20031223
  2. LEFLUNOMIDE [Concomitant]
  3. PREDNISONE [Concomitant]
  4. TRAMADOL HCL [Concomitant]
  5. METHOTREXATE [Concomitant]
  6. GLYCERYL TRINITRATE [Concomitant]
  7. BISOHEXAL [Concomitant]
  8. LEKOVIT CA [Concomitant]
  9. OMEBETA 20 [Concomitant]
  10. ISOZID-COMPOSITUM [Concomitant]

REACTIONS (7)
  - ANAEMIA [None]
  - BONE MARROW TOXICITY [None]
  - DIZZINESS [None]
  - DYSPNOEA EXERTIONAL [None]
  - ERYTHROPOIESIS ABNORMAL [None]
  - HAEMORRHOIDS [None]
  - MUCOSAL DISCOLOURATION [None]
